FAERS Safety Report 11250760 (Version 1)
Quarter: 2015Q3

REPORT INFORMATION
  Report Type: Spontaneous
  Country: US (occurrence: US)
  Receive Date: 20150708
  Receipt Date: 20150708
  Transmission Date: 20151125
  Serious: No
  Sender: FDA-Public Use
  Company Number: US-ELI_LILLY_AND_COMPANY-US201104002704

PATIENT
  Age: 68 Year
  Sex: Male

DRUGS (2)
  1. ALIMTA [Suspect]
     Active Substance: PEMETREXED DISODIUM
     Indication: ADENOSQUAMOUS CELL LUNG CANCER
     Dosage: STANDARD DOSE EVERY 3 WEEKS
  2. CORTICOSTEROIDS [Concomitant]
     Active Substance: CORTICOSTEROID NOS
     Dosage: DAY BEFORE, DAY OF AND DAY AFTER ALIMTA

REACTIONS (2)
  - Limb discomfort [Not Recovered/Not Resolved]
  - Constipation [Not Recovered/Not Resolved]
